FAERS Safety Report 6067239-3 (Version None)
Quarter: 2009Q1

REPORT INFORMATION
  Report Type: 
  Country: None (occurrence: None)
  Receive Date: 20090204
  Receipt Date: 20090204
  Transmission Date: 20090719
  Serious: Yes (Hospitalization)
  Sender: FDA-Public Use
  Company Number: None

PATIENT
  Sex: Male
  Weight: 84.1 kg

DRUGS (6)
  1. ETOPOSIDE [Suspect]
     Dosage: 160 MG
  2. IFOSFAMIDE [Suspect]
     Dosage: 4000 MG
  3. MESNA [Suspect]
     Dosage: 1000 MG
  4. RITUXIMAB (MOAB C2B8 ANTI CD20, CHIMERIC) [Suspect]
     Dosage: 375 MG
  5. DEXAMETHASONE TAB [Suspect]
     Dosage: 50 MG
  6. G-CSF (FILGRASTIM, AMGEN) [Suspect]
     Dosage: 30 MG

REACTIONS (6)
  - FEBRILE NEUTROPENIA [None]
  - INADEQUATE ANALGESIA [None]
  - MUCOSAL INFLAMMATION [None]
  - PALMAR-PLANTAR ERYTHRODYSAESTHESIA SYNDROME [None]
  - THROMBOCYTOPENIA [None]
  - TONGUE HAEMATOMA [None]
